FAERS Safety Report 10205611 (Version 1)
Quarter: 2014Q2

REPORT INFORMATION
  Report Type: Report from Study
  Country: IE (occurrence: IE)
  Receive Date: 20140529
  Receipt Date: 20140529
  Transmission Date: 20141212
  Serious: Yes (Other)
  Sender: FDA-Public Use
  Company Number: PHFR2014IE003802

PATIENT
  Age: 24 Year
  Sex: Female

DRUGS (2)
  1. TOBI [Suspect]
     Indication: CYSTIC FIBROSIS
     Dosage: UNK
     Route: 055
  2. CASEIN [Concomitant]
     Dosage: UNK

REACTIONS (1)
  - Wheezing [Recovered/Resolved]
